FAERS Safety Report 16171759 (Version 1)
Quarter: 2019Q2

REPORT INFORMATION
  Report Type: Spontaneous
  Country: HN (occurrence: HN)
  Receive Date: 20190408
  Receipt Date: 20190408
  Transmission Date: 20190711
  Serious: Yes (Hospitalization, Other)
  Sender: FDA-Public Use
  Company Number: HN-BRISTOL-MYERS SQUIBB COMPANY-BMS-2019-023976

PATIENT
  Age: 9 Year
  Sex: Female

DRUGS (1)
  1. SPRYCEL [Suspect]
     Active Substance: DASATINIB
     Indication: CHRONIC MYELOID LEUKAEMIA
     Dosage: 50 MILLIGRAM
     Route: 065

REACTIONS (2)
  - Bone marrow disorder [Unknown]
  - Leukopenia [Unknown]

NARRATIVE: CASE EVENT DATE: 201903
